FAERS Safety Report 23531503 (Version 1)
Quarter: 2024Q1

REPORT INFORMATION
  Report Type: Spontaneous
  Country: US (occurrence: None)
  Receive Date: 20240215
  Receipt Date: 20240215
  Transmission Date: 20240410
  Serious: Yes (Other)
  Sender: FDA-Public Use
  Company Number: None

PATIENT
  Age: 22 Year
  Sex: Female
  Weight: 80.5 kg

DRUGS (1)
  1. VONVENDI [Suspect]
     Active Substance: VON WILLEBRAND FACTOR (RECOMBINANT)
     Indication: Von Willebrand^s disease
     Dosage: FREQUENCY : AS NEEDED;?
     Route: 042
     Dates: start: 20231207, end: 20231207

REACTIONS (3)
  - Infusion related reaction [None]
  - Loss of consciousness [None]
  - Incorrect drug administration rate [None]

NARRATIVE: CASE EVENT DATE: 20231207
